FAERS Safety Report 4942050-2 (Version None)
Quarter: 2006Q1

REPORT INFORMATION
  Report Type: 
  Country: None (occurrence: None)
  Receive Date: 20060313
  Receipt Date: 20050504
  Transmission Date: 20060701
  Serious: No
  Sender: FDA-Public Use
  Company Number: US-GLAXOSMITHKLINE-A0557213A

PATIENT
  Sex: Female

DRUGS (5)
  1. NICORETTE (MINT) [Suspect]
  2. COMMIT [Suspect]
  3. NICORETTE (MINT) [Suspect]
  4. NICORETTE [Suspect]
  5. NICORETTE [Suspect]

REACTIONS (3)
  - ABDOMINAL PAIN UPPER [None]
  - GINGIVAL DISORDER [None]
  - TOOTH DISORDER [None]
